FAERS Safety Report 4498504-9 (Version None)
Quarter: 2004Q4

REPORT INFORMATION
  Report Type: 
  Country: None (occurrence: None)
  Receive Date: 20041105
  Receipt Date: 20041025
  Transmission Date: 20050328
  Serious: Yes (Death)
  Sender: FDA-Public Use
  Company Number: 2004-00712

PATIENT

DRUGS (1)
  1. VELCADE [Suspect]

REACTIONS (2)
  - AUTONOMIC NEUROPATHY [None]
  - ILEUS PARALYTIC [None]
